FAERS Safety Report 12342316 (Version 1)
Quarter: 2016Q2

REPORT INFORMATION
  Report Type: Spontaneous
  Country: US (occurrence: US)
  Receive Date: 20160506
  Receipt Date: 20160506
  Transmission Date: 20160815
  Serious: Yes (Death, Hospitalization)
  Sender: FDA-Public Use
  Company Number: US-PFIZER INC-2016244007

PATIENT
  Age: 70 Year
  Sex: Male
  Weight: 102 kg

DRUGS (14)
  1. COLACE [Concomitant]
     Active Substance: DOCUSATE SODIUM
  2. NAPROXEN. [Concomitant]
     Active Substance: NAPROXEN
  3. PRILOSEC [Concomitant]
     Active Substance: OMEPRAZOLE MAGNESIUM
  4. QUINAPRIL. [Concomitant]
     Active Substance: QUINAPRIL
  5. SUTENT [Suspect]
     Active Substance: SUNITINIB MALATE
     Indication: RENAL CANCER
     Dosage: 50 MG, DAILY
     Dates: start: 2015
  6. COUMARIN [Concomitant]
     Active Substance: COUMARIN
  7. ALLOPURINOL. [Concomitant]
     Active Substance: ALLOPURINOL
  8. SIMVASTATIN. [Concomitant]
     Active Substance: SIMVASTATIN
  9. ASPIRIN. [Concomitant]
     Active Substance: ASPIRIN
  10. FISH OIL [Concomitant]
     Active Substance: FISH OIL
  11. CLARITIN [Concomitant]
     Active Substance: LORATADINE
  12. METOPROLOL. [Concomitant]
     Active Substance: METOPROLOL
  13. MORPHINE SULFATE. [Concomitant]
     Active Substance: MORPHINE SULFATE
     Dosage: UNK
  14. SODIUM CHLORIDE. [Concomitant]
     Active Substance: SODIUM CHLORIDE

REACTIONS (4)
  - Weight fluctuation [Unknown]
  - Disease progression [Fatal]
  - Renal cancer [Fatal]
  - Swelling [Unknown]
